FAERS Safety Report 10214104 (Version 1)
Quarter: 2014Q2

REPORT INFORMATION
  Report Type: Spontaneous
  Country: US (occurrence: None)
  Receive Date: 20140602
  Receipt Date: 20140602
  Transmission Date: 20141212
  Serious: No
  Sender: FDA-Public Use
  Company Number: None

PATIENT
  Age: 48 Year
  Sex: Male
  Weight: 94.8 kg

DRUGS (3)
  1. QUETIAPINE (SEROQUEL) RX 0788284-01194 LUPIN [Suspect]
     Indication: SCHIZOPHRENIA
     Dosage: AT BEDTIME, BY MOUTH
     Route: 048
  2. MULTIVITAMINS [Concomitant]
  3. HERBAL SUPPPLEMENTS [Concomitant]

REACTIONS (8)
  - Somnolence [None]
  - Sluggishness [None]
  - Cough [None]
  - Vomiting [None]
  - Pulmonary congestion [None]
  - Increased viscosity of nasal secretion [None]
  - Oropharyngeal pain [None]
  - Dysphagia [None]
